FAERS Safety Report 13157696 (Version 1)
Quarter: 2017Q1

REPORT INFORMATION
  Report Type: Spontaneous
  Country: US (occurrence: US)
  Receive Date: 20170127
  Receipt Date: 20170127
  Transmission Date: 20170428
  Serious: No
  Sender: FDA-Public Use
  Company Number: US-BAYER-2017-016611

PATIENT
  Age: 55 Year
  Sex: Female
  Weight: 60 kg

DRUGS (7)
  1. VITAMIN D [Concomitant]
     Active Substance: CHOLECALCIFEROL
  2. MAGNESIUM [Concomitant]
     Active Substance: MAGNESIUM
  3. CLARITIN [Suspect]
     Active Substance: LORATADINE
     Indication: HYPERSENSITIVITY
     Dosage: 1 DF, QD
     Route: 048
  4. CLARITIN [Suspect]
     Active Substance: LORATADINE
     Indication: NASOPHARYNGITIS
     Dosage: 2 DF, QD
     Route: 048
  5. WELPAS [Concomitant]
  6. MULTI VITAMIN AND MINERAL + SELENIUM [Concomitant]
     Dosage: UNK
  7. VITAMIN B [Concomitant]
     Active Substance: VITAMIN B

REACTIONS (1)
  - Product use issue [Unknown]
